FAERS Safety Report 8531652-2 (Version None)
Quarter: 2012Q3

REPORT INFORMATION
  Report Type: 
  Country: None (occurrence: None)
  Receive Date: 20120723
  Receipt Date: 20120713
  Transmission Date: 20120928
  Serious: Yes (Hospitalization)
  Sender: FDA-Public Use
  Company Number: US-ASTRAZENECA-2012SE49165

PATIENT
  Age: 86 Year
  Sex: Male

DRUGS (1)
  1. BRILINTA [Suspect]
     Indication: ACUTE CORONARY SYNDROME
     Route: 048
     Dates: start: 20120613, end: 20120619

REACTIONS (3)
  - HYPOXIA [None]
  - DYSPNOEA [None]
  - DRUG HYPERSENSITIVITY [None]
